FAERS Safety Report 8822389 (Version 1)
Quarter: 2012Q4

REPORT INFORMATION
  Report Type: 
  Country: US (occurrence: US)
  Receive Date: 20121003
  Receipt Date: 20121003
  Transmission Date: 20130627
  Serious: No
  Sender: FDA-Public Use
  Company Number: US-ASTRAZENECA-2012SE16307

PATIENT
  Age: 83 Year
  Sex: Female
  Weight: 73.9 kg

DRUGS (4)
  1. NEXIUM [Suspect]
     Indication: GASTROOESOPHAGEAL REFLUX DISEASE
     Route: 048
  2. NEXIUM [Suspect]
     Indication: HYPERCHLORHYDRIA
     Route: 048
  3. ATENOLOL [Concomitant]
     Indication: BLOOD PRESSURE ABNORMAL
  4. HYDROCHLOROTHIAZID [Concomitant]

REACTIONS (6)
  - Hand deformity [Unknown]
  - Muscle spasms [Recovered/Resolved with Sequelae]
  - Muscle spasms [Unknown]
  - Foot deformity [Unknown]
  - Abdominal pain upper [Unknown]
  - Drug dose omission [Unknown]
